FAERS Safety Report 10089014 (Version 1)
Quarter: 2014Q2

REPORT INFORMATION
  Report Type: Spontaneous
  Country: US (occurrence: None)
  Receive Date: 20140418
  Receipt Date: 20140418
  Transmission Date: 20141212
  Serious: Yes (Disabling)
  Sender: FDA-Public Use
  Company Number: None

PATIENT
  Age: 71 Year
  Sex: Female
  Weight: 77.11 kg

DRUGS (6)
  1. CIPROFLOXACIN 500 MG COBALT [Suspect]
     Indication: ESCHERICHIA INFECTION
     Route: 048
     Dates: start: 20140220, end: 20140224
  2. RESTASIS [Concomitant]
  3. VITAMIN E [Concomitant]
  4. FISH OIL [Concomitant]
  5. ACIDOPHILIUS [Concomitant]
  6. CALTRATE [Concomitant]

REACTIONS (7)
  - Heart rate irregular [None]
  - Pulse pressure decreased [None]
  - Muscular weakness [None]
  - Limb discomfort [None]
  - Fatigue [None]
  - Pain in extremity [None]
  - Gait disturbance [None]
